FAERS Safety Report 9712691 (Version 1)
Quarter: 2013Q4

REPORT INFORMATION
  Report Type: Spontaneous
  Country: US (occurrence: US)
  Receive Date: 20131126
  Receipt Date: 20131126
  Transmission Date: 20140711
  Serious: No
  Sender: FDA-Public Use
  Company Number: US-BRISTOL-MYERS SQUIBB COMPANY-18901173

PATIENT
  Age: 63 Year
  Sex: Female

DRUGS (4)
  1. BYDUREON [Suspect]
     Dosage: NO OF DOSES:7,LAST DOSE ON 7MAY13
     Dates: start: 20130417, end: 20130510
  2. METFORMIN HCL [Suspect]
     Dates: end: 20130426
  3. GLYBURIDE [Concomitant]
     Indication: TYPE 2 DIABETES MELLITUS
  4. KOMBIGLYZE XR [Concomitant]
     Indication: TYPE 2 DIABETES MELLITUS

REACTIONS (3)
  - Dizziness [Unknown]
  - Asthenia [Unknown]
  - Weight decreased [Unknown]
